FAERS Safety Report 11107720 (Version 2)
Quarter: 2015Q2

REPORT INFORMATION
  Report Type: Report from Study
  Country: CN (occurrence: CN)
  Receive Date: 20150512
  Receipt Date: 20150601
  Transmission Date: 20150821
  Serious: Yes (Death, Hospitalization)
  Sender: FDA-Public Use
  Company Number: CN-ASTELLAS-2015JP008583

PATIENT
  Age: 66 Year
  Sex: Male

DRUGS (11)
  1. LEVAMLODIPINE BESYLATE [Concomitant]
     Active Substance: LEVAMLODIPINE BESILATE
     Indication: HYPERTENSION
     Route: 048
     Dates: start: 20150310, end: 20150430
  2. LEVOFLOXACIN. [Concomitant]
     Active Substance: LEVOFLOXACIN
     Indication: PNEUMONIA
     Dosage: UNK UNK, UNKNOWN FREQ.
     Route: 065
     Dates: start: 201504, end: 20150430
  3. ACETAMINOPHEN. [Concomitant]
     Active Substance: ACETAMINOPHEN
     Indication: PAIN
     Route: 048
     Dates: start: 20150310, end: 20150430
  4. CEFOTIAM [Concomitant]
     Active Substance: CEFOTIAM
     Indication: PNEUMONIA
     Dosage: UNK UNK, UNKNOWN FREQ.
     Route: 065
     Dates: start: 201504, end: 20150430
  5. ENZALUTAMIDE [Suspect]
     Active Substance: ENZALUTAMIDE
     Route: 048
     Dates: start: 20150301, end: 201504
  6. MOSAPRIDE CITRATE [Concomitant]
     Active Substance: MOSAPRIDE CITRATE
     Indication: GASTRIC ULCER
     Route: 048
     Dates: start: 20150308, end: 20150430
  7. AMBROXOL [Concomitant]
     Active Substance: AMBROXOL
     Indication: PNEUMONIA
     Dosage: UNK UNK, UNKNOWN FREQ.
     Route: 065
     Dates: start: 201504, end: 20150430
  8. ENZALUTAMIDE [Suspect]
     Active Substance: ENZALUTAMIDE
     Indication: HORMONE-REFRACTORY PROSTATE CANCER
     Route: 048
     Dates: start: 20150116, end: 20150228
  9. IRBESARTAN AND HYDROCHLOROTHIAZIDE [Concomitant]
     Active Substance: HYDROCHLOROTHIAZIDE\IRBESARTAN
     Indication: HYPERTENSION
     Route: 048
     Dates: start: 20150310, end: 20150430
  10. TRAMADOL HYDROCHLORIDE. [Concomitant]
     Active Substance: TRAMADOL HYDROCHLORIDE
     Indication: PAIN
     Route: 048
     Dates: start: 20150310, end: 20150430
  11. ALUMINUM MAGNESIUM TITANATE [Concomitant]
     Indication: GASTRIC ULCER
     Route: 048
     Dates: start: 20150308, end: 20150430

REACTIONS (2)
  - Pneumonia [Fatal]
  - Death [Fatal]

NARRATIVE: CASE EVENT DATE: 20150402
